FAERS Safety Report 12535084 (Version 2)
Quarter: 2016Q3

REPORT INFORMATION
  Report Type: Spontaneous
  Country: DE (occurrence: DE)
  Receive Date: 20160707
  Receipt Date: 20160816
  Transmission Date: 20161109
  Serious: Yes (Other)
  Sender: FDA-Public Use
  Company Number: DE-THE MEDICINES COMPANY-DE-MDCO-16-00245

PATIENT

DRUGS (1)
  1. ANGIOX [Suspect]
     Active Substance: BIVALIRUDIN
     Indication: PRODUCT USED FOR UNKNOWN INDICATION
     Dosage: NOT REPORTED

REACTIONS (3)
  - Heart rate increased [Unknown]
  - Incorrect product storage [Unknown]
  - Blood pressure increased [Unknown]
